FAERS Safety Report 4851289-6 (Version None)
Quarter: 2005Q4

REPORT INFORMATION
  Report Type: 
  Country: None (occurrence: None)
  Receive Date: 20051208
  Receipt Date: 20051116
  Transmission Date: 20060501
  Serious: Yes (Hospitalization, Other)
  Sender: FDA-Public Use
  Company Number: US200511001396

PATIENT
  Age: 41 Year
  Sex: Female

DRUGS (9)
  1. INSULIN, ANIMAL (INSULIN, ANIMAL PORK NPH) [Suspect]
     Indication: DIABETES MELLITUS
     Dates: start: 19710101, end: 19910801
  2. INSULIN, ANIMAL (INSULIN, ANIMAL BEEF REGULAR) [Suspect]
     Indication: DIABETES MELLITUS
     Dates: start: 19710101, end: 19910801
  3. HUMALOG [Suspect]
     Indication: DIABETES MELLITUS
     Dosage: AS NEEDED
     Dates: start: 20051026
  4. HUMALOG [Suspect]
     Indication: DIABETES MELLITUS
     Dates: start: 20051113
  5. PREDNISONE [Concomitant]
  6. PROGRAF   /USA/ (TACROLIMUS) [Concomitant]
  7. INDERAL [Concomitant]
  8. LIPITOR [Concomitant]
  9. LANTUS [Concomitant]

REACTIONS (10)
  - CIRCUMSTANCE OR INFORMATION CAPABLE OF LEADING TO MEDICATION ERROR [None]
  - DIABETES MELLITUS INADEQUATE CONTROL [None]
  - HAEMODIALYSIS [None]
  - HYPERTENSION [None]
  - MIGRAINE [None]
  - PANCREAS TRANSPLANT [None]
  - PANCREAS TRANSPLANT REJECTION [None]
  - PHARMACEUTICAL PRODUCT COMPLAINT [None]
  - RENAL FAILURE [None]
  - RENAL TRANSPLANT [None]
